FAERS Safety Report 9943466 (Version 3)
Quarter: 2014Q2

REPORT INFORMATION
  Report Type: Spontaneous
  Country: US (occurrence: US)
  Receive Date: 20140303
  Receipt Date: 20140502
  Transmission Date: 20141212
  Serious: Yes (Death)
  Sender: FDA-Public Use
  Company Number: US-PFIZER INC-2014058905

PATIENT
  Age: 85 Year
  Sex: Female
  Weight: 47.62 kg

DRUGS (13)
  1. REVATIO [Suspect]
     Indication: CHRONIC OBSTRUCTIVE PULMONARY DISEASE
     Dosage: 20 MG, 3X/DAY
     Route: 048
     Dates: start: 20121224
  2. ISOSORBIDE [Concomitant]
     Dosage: 30 MG, UNK
  3. SINGULAIR [Concomitant]
     Dosage: 10 MG, UNK
  4. LEVOTHYROXINE [Concomitant]
     Dosage: 0.100 MG, UNK
  5. FUROSEMIDE [Concomitant]
     Dosage: 40 MG, UNK
  6. POTASSIUM CHLORIDE [Concomitant]
     Dosage: 10 MEQ, UNK
  7. CALTRATE 600+D [Concomitant]
     Dosage: UNK
  8. OMEPRAZOLE [Concomitant]
     Dosage: UNK
  9. PREDNISONE [Concomitant]
     Dosage: 10 MG, UNK
  10. ROPINIROLE [Concomitant]
     Dosage: 1 MG, UNK
  11. SERTRALINE [Concomitant]
     Dosage: 100 MG, UNK
  12. ALPRAZOLAM [Concomitant]
     Dosage: 0.25 MG, UNK
  13. SPIRIVA [Concomitant]
     Dosage: 18 UG, UNK

REACTIONS (1)
  - Chronic obstructive pulmonary disease [Fatal]
